FAERS Safety Report 25876041 (Version 1)
Quarter: 2025Q4

REPORT INFORMATION
  Report Type: Spontaneous
  Country: US (occurrence: US)
  Receive Date: 20251003
  Receipt Date: 20251003
  Transmission Date: 20260117
  Serious: No
  Sender: ZYDUS PHARM
  Company Number: US-CADILA HEALTHCARE LIMITED-US-ZYDUS-128810

PATIENT

DRUGS (1)
  1. BOSENTAN [Suspect]
     Active Substance: BOSENTAN
     Indication: Product used for unknown indication
     Dosage: 62.5 MILLIGRAM
     Route: 065

REACTIONS (2)
  - Therapy interrupted [Unknown]
  - Insurance issue [Unknown]

NARRATIVE: CASE EVENT DATE: 20250101
